FAERS Safety Report 14228448 (Version 2)
Quarter: 2017Q4

REPORT INFORMATION
  Report Type: Spontaneous
  Country: GA (occurrence: GA)
  Receive Date: 20171127
  Receipt Date: 20171130
  Transmission Date: 20180321
  Serious: Yes (Death)
  Sender: FDA-Public Use
  Company Number: PHHY2017GA174697

PATIENT
  Age: 5 Year
  Sex: Male

DRUGS (1)
  1. COARTEM [Suspect]
     Active Substance: ARTEMETHER\LUMEFANTRINE
     Indication: MALARIA
     Dosage: 1 DF, BID
     Route: 048
     Dates: start: 20171115

REACTIONS (2)
  - Malaria [Fatal]
  - Anaemia [Fatal]

NARRATIVE: CASE EVENT DATE: 20171117
